FAERS Safety Report 5449721-2 (Version None)
Quarter: 2007Q3

REPORT INFORMATION
  Report Type: 
  Country: None (occurrence: None)
  Receive Date: 20070910
  Receipt Date: 20070828
  Transmission Date: 20080115
  Serious: Yes (Death, Hospitalization)
  Sender: FDA-Public Use
  Company Number: 2005P1000391

PATIENT
  Age: 73 Year
  Sex: Male
  Weight: 82 kg

DRUGS (15)
  1. PLACEBO (PLACEBO) [Suspect]
     Indication: ACUTE MYOCARDIAL INFARCTION
     Dosage: 5 IU;BID; IV, 0.25 MG/KG, X1; IV
     Dates: start: 20050523, end: 20050523
  2. PLACEBO (PLACEBO) [Suspect]
     Indication: ACUTE MYOCARDIAL INFARCTION
     Dosage: 5 IU;BID; IV, 0.25 MG/KG, X1; IV
     Dates: start: 20050523, end: 20050523
  3. ABCIXIMAB (ABCIXIMAB) [Suspect]
     Indication: ACUTE MYOCARDIAL INFARCTION
     Dosage: 10.3 MG; A1; IV, 39.6 MG, X1; IV
     Route: 042
     Dates: start: 20050523, end: 20050523
  4. ABCIXIMAB (ABCIXIMAB) [Suspect]
     Indication: ACUTE MYOCARDIAL INFARCTION
     Dosage: 10.3 MG; A1; IV, 39.6 MG, X1; IV
     Route: 042
     Dates: start: 20050523, end: 20050523
  5. ASPIRIN [Concomitant]
  6. HEPARIN [Concomitant]
  7. CLOPIDOGREL [Concomitant]
  8. CARVEDILOL [Concomitant]
  9. CILAZAPRIL [Concomitant]
  10. AMIODARONE HCL [Concomitant]
  11. FUROSEMIDE [Concomitant]
  12. CEFTAZIDIME [Concomitant]
  13. RANTIDINE [Concomitant]
  14. METOCLOPRAMIDE [Concomitant]
  15. ENOXAPARIN SODIUM [Concomitant]

REACTIONS (14)
  - BLOOD GLUCOSE INCREASED [None]
  - BRADYCARDIA [None]
  - CARDIAC ARREST [None]
  - CARDIOVASCULAR DISORDER [None]
  - MULTI-ORGAN FAILURE [None]
  - NO THERAPEUTIC RESPONSE [None]
  - PNEUMONIA [None]
  - PULMONARY OEDEMA [None]
  - RESPIRATORY FAILURE [None]
  - RESPIRATORY TRACT INFECTION FUNGAL [None]
  - SEPTIC SHOCK [None]
  - VENTRICULAR ARRHYTHMIA [None]
  - VENTRICULAR FIBRILLATION [None]
  - VENTRICULAR TACHYCARDIA [None]
